FAERS Safety Report 4705292-7 (Version None)
Quarter: 2005Q2

REPORT INFORMATION
  Report Type: 
  Country: None (occurrence: None)
  Receive Date: 20050629
  Receipt Date: 20050613
  Transmission Date: 20051028
  Serious: Yes (Life-Threatening, Hospitalization)
  Sender: FDA-Public Use
  Company Number: 2005S1003582

PATIENT
  Age: 79 Year
  Sex: Female
  Weight: 81.6475 kg

DRUGS (8)
  1. PACLITAXEL INJECTION (100 MG) [Suspect]
     Indication: LUNG NEOPLASM MALIGNANT
     Dosage: 137 MG; IV
     Route: 042
     Dates: start: 20050506, end: 20050506
  2. VALSARTAN [Concomitant]
  3. CIMETIDINE [Concomitant]
  4. PARACETAMOL/DEXTROPROPOXYPHENE  MESILATE [Concomitant]
  5. NAPSILATE [Concomitant]
  6. DOLASETRON MESILATE [Concomitant]
  7. DEXAMETHASONE [Concomitant]
  8. DIPHENHYDRAMINE HCL [Concomitant]

REACTIONS (2)
  - ANAPHYLACTIC REACTION [None]
  - BLOOD PRESSURE DECREASED [None]
